FAERS Safety Report 18382852 (Version 1)
Quarter: 2020Q4

REPORT INFORMATION
  Report Type: Spontaneous
  Country: US (occurrence: US)
  Receive Date: 20201014
  Receipt Date: 20201014
  Transmission Date: 20210114
  Serious: No
  Sender: FDA-Public Use
  Company Number: None

PATIENT
  Age: 76 Year
  Sex: Female
  Weight: 52.56 kg

DRUGS (10)
  1. FISH OIL [Concomitant]
     Active Substance: FISH OIL
  2. CAPECITABINE. [Suspect]
     Active Substance: CAPECITABINE
     Indication: COLON CANCER
     Dosage: ?          OTHER FREQUENCY:DIV DOSE 14/21DAYS;?
     Route: 048
     Dates: start: 20200810, end: 20201014
  3. MIRTAZIPINE [Concomitant]
     Active Substance: MIRTAZAPINE
  4. ATVAN [Concomitant]
  5. VITAMIN B COMPLEX [Concomitant]
     Active Substance: CYANOCOBALAMIN\DEXPANTHENOL\NIACINAMIDE\PYRIDOXINE HYDROCHLORIDE\RIBOFLAVIN 5^-PHOSPHATE SODIUM\THIAMINE HYDROCHLORIDE\VITAMIN B COMPLEX
  6. VITAMIN D2 [Concomitant]
     Active Substance: ERGOCALCIFEROL
  7. KEYTRUDA [Concomitant]
     Active Substance: PEMBROLIZUMAB
  8. MEGACE [Concomitant]
     Active Substance: MEGESTROL ACETATE
  9. CALCIUM CITRATE [Concomitant]
     Active Substance: CALCIUM CITRATE
  10. POTASSIUM [Concomitant]
     Active Substance: POTASSIUM

REACTIONS (3)
  - Asthenia [None]
  - Dizziness [None]
  - Feeding disorder [None]

NARRATIVE: CASE EVENT DATE: 20201014
